FAERS Safety Report 6587698-7 (Version None)
Quarter: 2010Q1

REPORT INFORMATION
  Report Type: 
  Country: None (occurrence: None)
  Receive Date: 20100218
  Receipt Date: 20100210
  Transmission Date: 20100710
  Serious: Yes (Other)
  Sender: FDA-Public Use
  Company Number: JP-ELI_LILLY_AND_COMPANY-JP201002004403

PATIENT
  Age: 83 Year
  Sex: Female

DRUGS (12)
  1. ALIMTA [Suspect]
     Indication: NON-SMALL CELL LUNG CANCER
     Dosage: 550 MG, OTHER
     Route: 042
     Dates: start: 20091105
  2. IRESSA [Concomitant]
     Indication: NON-SMALL CELL LUNG CANCER
     Dosage: 250 UG, UNK
     Route: 048
     Dates: start: 20091107
  3. PANVITAN [Concomitant]
     Dosage: 1 G, DAILY (1/D)
     Route: 048
  4. ADALAT [Concomitant]
     Indication: HYPERTENSION
     Dosage: 20 MG, 2/D
     Route: 048
  5. MAGMITT [Concomitant]
     Dosage: 330 MG, 3/D
     Route: 048
  6. HOKUNALIN [Concomitant]
     Dosage: 2 D/F, DAILY (1/D)
     Route: 062
  7. ONEALFA [Concomitant]
     Dosage: 1 UG, DAILY (1/D)
     Route: 048
  8. ASPARA-CA [Concomitant]
     Dosage: 400 MG, 2/D
     Route: 048
  9. ONON [Concomitant]
     Dosage: 225 MG, 2/D
     Route: 048
  10. DASEN [Concomitant]
     Dosage: 5 MG, 3/D
     Route: 048
  11. DIHYDROCODEINE PHOSPHATE [Concomitant]
     Indication: COUGH
     Dosage: UNK, AS NEEDED
     Route: 048
  12. METHYCOBAL [Concomitant]
     Dosage: 1000 UG, UNK
     Dates: start: 20091020

REACTIONS (1)
  - MALIGNANT PLEURAL EFFUSION [None]
